FAERS Safety Report 5045213-3 (Version None)
Quarter: 2006Q3

REPORT INFORMATION
  Report Type: 
  Country: None (occurrence: None)
  Receive Date: 20060707
  Receipt Date: 20060623
  Transmission Date: 20061208
  Serious: Yes (Life-Threatening, Hospitalization)
  Sender: FDA-Public Use
  Company Number: JP-JPN-A200602254

PATIENT
  Age: 81 Year
  Sex: Female
  Weight: 53 kg

DRUGS (12)
  1. VALTREX [Suspect]
     Indication: HERPES ZOSTER
     Dosage: 2U THREE TIMES PER DAY
     Route: 048
     Dates: start: 20060529, end: 20060602
  2. BLOPRESS [Suspect]
     Indication: HYPERTENSION
     Dosage: .5U PER DAY
     Route: 048
     Dates: start: 20060603
  3. UNKNOWN MEDICATION [Suspect]
     Dosage: 1U PER DAY
     Route: 048
     Dates: end: 20060602
  4. LIPITOR [Suspect]
     Dosage: 1U PER DAY
     Route: 048
     Dates: end: 20060602
  5. UNKNOWN MEDICATION [Suspect]
     Dosage: 1U PER DAY
     Route: 048
     Dates: end: 20060602
  6. NESGEN [Suspect]
     Indication: INSOMNIA
     Dosage: .5U PER DAY
     Route: 048
     Dates: end: 20060602
  7. NITRAZEPAM [Suspect]
     Indication: INSOMNIA
     Dosage: .5U PER DAY
     Route: 048
     Dates: end: 20060602
  8. COSMEGEN [Suspect]
     Indication: HERPES ZOSTER
     Dosage: 1U PER DAY
     Route: 048
     Dates: start: 20060529, end: 20060602
  9. FURULMINE [Suspect]
     Indication: HERPES ZOSTER
     Dosage: 1U TWICE PER DAY
     Route: 048
     Dates: start: 20060529, end: 20060602
  10. CALONAL [Concomitant]
     Indication: HERPES ZOSTER
     Dosage: 1U TWICE PER DAY
     Route: 048
     Dates: start: 20060529, end: 20060602
  11. UNKNOWN MEDICATION [Concomitant]
     Indication: HERPES ZOSTER
     Dosage: 1U TWICE PER DAY
     Route: 048
     Dates: start: 20060529, end: 20060602
  12. ZOLPIDEM TARTRATE [Concomitant]
     Dates: start: 20060603

REACTIONS (12)
  - ANOREXIA [None]
  - BLOOD CREATININE INCREASED [None]
  - BLOOD UREA INCREASED [None]
  - DEPRESSED LEVEL OF CONSCIOUSNESS [None]
  - DIZZINESS [None]
  - DYSLALIA [None]
  - EYELID OEDEMA [None]
  - GAIT DISTURBANCE [None]
  - NAUSEA [None]
  - NERVOUS SYSTEM DISORDER [None]
  - RENAL IMPAIRMENT [None]
  - VOMITING [None]
